FAERS Safety Report 9219156 (Version 1)
Quarter: 2013Q2

REPORT INFORMATION
  Report Type: Spontaneous
  Country: US (occurrence: None)
  Receive Date: 20130405
  Receipt Date: 20130405
  Transmission Date: 20140414
  Serious: Yes (Hospitalization)
  Sender: FDA-Public Use
  Company Number: None

PATIENT
  Age: 75 Year
  Sex: Female
  Weight: 56.3 kg

DRUGS (2)
  1. CISPLATIN [Suspect]
  2. ETOPOSIDE (VP-16) [Suspect]

REACTIONS (5)
  - Abdominal pain [None]
  - Aphagia [None]
  - Gastrooesophageal reflux disease [None]
  - Neutropenia [None]
  - Oesophageal candidiasis [None]
